FAERS Safety Report 18163939 (Version 1)
Quarter: 2020Q3

REPORT INFORMATION
  Report Type: Spontaneous
  Country: US (occurrence: US)
  Receive Date: 20200818
  Receipt Date: 20200818
  Transmission Date: 20201103
  Serious: No
  Sender: FDA-Public Use
  Company Number: US-OTSUKA-2020_009816

PATIENT
  Age: 14 Year

DRUGS (1)
  1. ABILIFY [Suspect]
     Active Substance: ARIPIPRAZOLE
     Indication: PRODUCT USED FOR UNKNOWN INDICATION
     Dosage: 10 MG IN THE MORNING, 10 MG IN THE AFTERNOON, AND 5 MG IN THE EVENING, TID
     Route: 048

REACTIONS (1)
  - Inappropriate schedule of product administration [Unknown]
